FAERS Safety Report 7728332-X (Version None)
Quarter: 2011Q3

REPORT INFORMATION
  Report Type: 
  Country: None (occurrence: None)
  Receive Date: 20110905
  Receipt Date: 20110830
  Transmission Date: 20111222
  Serious: Yes (Death, Hospitalization, Other)
  Sender: FDA-Public Use
  Company Number: PHHY2011DE63607

PATIENT
  Sex: Male
  Weight: 60 kg

DRUGS (9)
  1. MCP [Concomitant]
  2. FOLFIRI [Concomitant]
  3. CIPROFLOXACIN [Concomitant]
  4. KEVATRIL [Concomitant]
  5. ZOMETA [Suspect]
     Indication: METASTASES TO BONE
     Dosage: 4 MG/ 5 MG
     Route: 042
     Dates: start: 20110401, end: 20110601
  6. MORFINE [Concomitant]
  7. FENTANYL-100 [Concomitant]
     Indication: CANCER PAIN
     Dosage: 200 UG, UNK
  8. FOLFOX-4 [Concomitant]
  9. AVASTIN [Concomitant]

REACTIONS (7)
  - CONFUSIONAL STATE [None]
  - PAIN [None]
  - PSYCHOMOTOR HYPERACTIVITY [None]
  - MENTAL DISORDER [None]
  - NEOPLASM MALIGNANT [None]
  - INSOMNIA [None]
  - NEOPLASM PROGRESSION [None]
